FAERS Safety Report 15352158 (Version 2)
Quarter: 2018Q3

REPORT INFORMATION
  Report Type: Report from Study
  Country: DE (occurrence: DE)
  Receive Date: 20180905
  Receipt Date: 20180920
  Transmission Date: 20181010
  Serious: Yes (Other)
  Sender: FDA-Public Use
  Company Number: DE-TAKEDA-2018TUS025563

PATIENT
  Sex: Female
  Weight: 2.96 kg

DRUGS (3)
  1. VEDOLIZUMAB [Suspect]
     Active Substance: VEDOLIZUMAB
     Indication: COLITIS ULCERATIVE
     Dosage: 108 MG, Q2WEEKS
     Route: 058
     Dates: start: 20170613, end: 20170726
  2. PLACEBO [Suspect]
     Active Substance: UNSPECIFIED INGREDIENT
     Indication: COLITIS ULCERATIVE
     Dosage: UNK UNK, Q8WEEKS
     Route: 042
     Dates: start: 20170613, end: 20170726
  3. MLN0002 [Suspect]
     Active Substance: VEDOLIZUMAB
     Indication: COLITIS ULCERATIVE
     Dosage: 300 MG, Q8WEEKS
     Route: 065
     Dates: start: 20170427, end: 20170613

REACTIONS (2)
  - Developmental hip dysplasia [Unknown]
  - Jaundice neonatal [Unknown]
